FAERS Safety Report 24192305 (Version 1)
Quarter: 2024Q3

REPORT INFORMATION
  Report Type: Spontaneous
  Country: FI (occurrence: FI)
  Receive Date: 20240809
  Receipt Date: 20240809
  Transmission Date: 20241017
  Serious: Yes (Other)
  Sender: ALKEM
  Company Number: FI-ALKEM LABORATORIES LIMITED-FI-ALKEM-2024-17384

PATIENT
  Age: 26 Year
  Sex: Female

DRUGS (1)
  1. METHYLPHENIDATE HYDROCHLORIDE [Suspect]
     Active Substance: METHYLPHENIDATE HYDROCHLORIDE
     Indication: Attention deficit hyperactivity disorder
     Dosage: UNK, TABLET
     Route: 042

REACTIONS (2)
  - Histiocytosis [Unknown]
  - Swelling of eyelid [Unknown]
